FAERS Safety Report 8366934-0 (Version None)
Quarter: 2012Q2

REPORT INFORMATION
  Report Type: 
  Country: None (occurrence: None)
  Receive Date: 20120517
  Receipt Date: 20120514
  Transmission Date: 20120825
  Serious: Yes (Hospitalization)
  Sender: FDA-Public Use
  Company Number: US-BAYER-2011-062457

PATIENT
  Age: 42 Year
  Sex: Female
  Weight: 98.866 kg

DRUGS (15)
  1. DARVOCET [Concomitant]
     Dosage: UNK
     Dates: end: 20090613
  2. VICODIN [Concomitant]
     Dosage: UNK
     Dates: start: 20090613
  3. TIZANIDINE [Concomitant]
     Dosage: UNK
  4. MULTI-VITAMIN [Concomitant]
  5. ZANAFLEX [Concomitant]
  6. PROTONIX [Concomitant]
  7. METHYLPREDNISOLONE [Concomitant]
  8. NAPROXEN [Concomitant]
  9. YAZ [Suspect]
     Indication: MENSTRUAL CYCLE MANAGEMENT
  10. VALIUM [Concomitant]
     Dosage: UNK
     Dates: start: 20090613
  11. AZITHROMYCIN [Concomitant]
     Dosage: 250 MG, UNK
  12. NAFTIN [Concomitant]
  13. YAZ [Suspect]
     Indication: PREMENSTRUAL SYNDROME
     Dosage: UNK
     Dates: start: 20090201, end: 20090614
  14. ROCEPHIN [Concomitant]
  15. TERBINAFINE HCL [Concomitant]

REACTIONS (4)
  - DEEP VEIN THROMBOSIS [None]
  - EMOTIONAL DISTRESS [None]
  - PULMONARY EMBOLISM [None]
  - PAIN [None]
